FAERS Safety Report 24411209 (Version 2)
Quarter: 2025Q1

REPORT INFORMATION
  Report Type: Spontaneous
  Country: US (occurrence: US)
  Receive Date: 20241008
  Receipt Date: 20250108
  Transmission Date: 20250408
  Serious: No
  Sender: FERRING
  Company Number: US-FERRINGPH-2024FE05169

PATIENT
  Sex: Female

DRUGS (1)
  1. ADSTILADRIN [Suspect]
     Active Substance: NADOFARAGENE FIRADENOVEC-VNCG
     Indication: Bladder cancer
     Dosage: 75 ML, ONCE/SINGLE
     Route: 043
     Dates: start: 20240702, end: 20240702

REACTIONS (3)
  - Muscle spasms [Unknown]
  - Headache [Unknown]
  - Drug ineffective [Unknown]

NARRATIVE: CASE EVENT DATE: 20240101
